FAERS Safety Report 6374012-5 (Version None)
Quarter: 2009Q3

REPORT INFORMATION
  Report Type: 
  Country: None (occurrence: None)
  Receive Date: 20090924
  Receipt Date: 20090918
  Transmission Date: 20100115
  Serious: Yes (Other)
  Sender: FDA-Public Use
  Company Number: BR-ROCHE-657623

PATIENT
  Sex: Female
  Weight: 53 kg

DRUGS (1)
  1. RIVOTRIL [Suspect]
     Indication: INSOMNIA RELATED TO ANOTHER MENTAL CONDITION
     Dosage: DOSE: 2.5 MG/ML, FREQUENCY: 10-15 DROPS/DAY
     Route: 048
     Dates: start: 20040101, end: 20090909

REACTIONS (1)
  - POSTPARTUM DEPRESSION [None]
